FAERS Safety Report 17365085 (Version 1)
Quarter: 2020Q1

REPORT INFORMATION
  Report Type: Spontaneous
  Country: GB (occurrence: GB)
  Receive Date: 20200204
  Receipt Date: 20200204
  Transmission Date: 20200409
  Serious: Yes (Other)
  Sender: FDA-Public Use
  Company Number: GB-AUROBINDO-AUR-APL-2020-004878

PATIENT
  Sex: Male

DRUGS (4)
  1. CLOZARIL [Suspect]
     Active Substance: CLOZAPINE
     Dosage: UNK
     Route: 048
     Dates: start: 20060120
  2. OLANZAPINE. [Suspect]
     Active Substance: OLANZAPINE
     Indication: SCHIZOPHRENIA
     Dosage: 40 MILLIGRAM, ONCE A DAY (UPTO 40 MG)
     Route: 065
     Dates: start: 201902
  3. CLOZARIL [Suspect]
     Active Substance: CLOZAPINE
     Dosage: UNK
     Route: 048
     Dates: start: 200610, end: 201902
  4. CLOZARIL [Suspect]
     Active Substance: CLOZAPINE
     Indication: SCHIZOPHRENIA
     Dosage: UNK
     Route: 048
     Dates: start: 200312, end: 200505

REACTIONS (5)
  - Drug ineffective [Unknown]
  - Adverse event [Unknown]
  - Blood test abnormal [Not Recovered/Not Resolved]
  - Off label use [Unknown]
  - Schizophrenia [Recovering/Resolving]

NARRATIVE: CASE EVENT DATE: 200505
